FAERS Safety Report 25495199 (Version 1)
Quarter: 2025Q2

REPORT INFORMATION
  Report Type: Spontaneous
  Country: JP (occurrence: JP)
  Receive Date: 20250630
  Receipt Date: 20250630
  Transmission Date: 20250717
  Serious: Yes (Other)
  Sender: PFIZER
  Company Number: JP-ONO-2025JP011053

PATIENT
  Age: 5 Decade

DRUGS (5)
  1. BRAFTOVI [Suspect]
     Active Substance: ENCORAFENIB
     Indication: Colon cancer
     Route: 048
  2. BRAFTOVI [Suspect]
     Active Substance: ENCORAFENIB
     Route: 048
  3. MEKTOVI [Suspect]
     Active Substance: BINIMETINIB
     Indication: Colon cancer
     Route: 048
  4. MEKTOVI [Suspect]
     Active Substance: BINIMETINIB
     Route: 048
  5. CETUXIMAB [Concomitant]
     Active Substance: CETUXIMAB
     Indication: Colon cancer
     Route: 065

REACTIONS (1)
  - Serous retinal detachment [Recovered/Resolved]
